FAERS Safety Report 4390137-8 (Version None)
Quarter: 2004Q2

REPORT INFORMATION
  Report Type: 
  Country: None (occurrence: None)
  Receive Date: 20040630
  Receipt Date: 20040616
  Transmission Date: 20050107
  Serious: Yes (Other)
  Sender: FDA-Public Use
  Company Number: B0335777A

PATIENT
  Age: 69 Year
  Sex: Male

DRUGS (3)
  1. LANOXIN [Suspect]
     Dosage: SEE DOSAGE TEXT, INTRAVENOUS
     Route: 042
  2. AMIODARONE HCL [Suspect]
     Dosage: SEE DOSAGE TEXT, INTRAVENOUS
     Route: 042
  3. DOBUTAMINE [Concomitant]

REACTIONS (5)
  - HYPOKALAEMIA [None]
  - INFUSION RELATED REACTION [None]
  - RENAL IMPAIRMENT [None]
  - THERAPEUTIC AGENT TOXICITY [None]
  - VENTRICULAR TACHYCARDIA [None]
